FAERS Safety Report 7153596-3 (Version None)
Quarter: 2010Q4

REPORT INFORMATION
  Report Type: 
  Country: None (occurrence: None)
  Receive Date: 20101213
  Receipt Date: 20101203
  Transmission Date: 20110411
  Serious: Yes (Other)
  Sender: FDA-Public Use
  Company Number: US-ABBOTT-10P-163-0689860-00

PATIENT
  Sex: Female
  Weight: 81.72 kg

DRUGS (15)
  1. HUMIRA [Suspect]
     Indication: RHEUMATOID ARTHRITIS
     Dates: start: 20100727
  2. LEVOTHYROXINE SODIUM [Concomitant]
     Indication: THYROIDECTOMY
  3. COUMADIN [Concomitant]
     Indication: DEEP VEIN THROMBOSIS
     Dates: start: 20050101
  4. FOLBIC [Concomitant]
     Indication: THROMBOSIS PROPHYLAXIS
  5. FOLIC ACID [Concomitant]
     Indication: PRODUCT USED FOR UNKNOWN INDICATION
  6. LEVAQUIN [Concomitant]
     Indication: EXTRAPYRAMIDAL DISORDER
     Dosage: DAY OF AND FOR 2 DAYS AFTER METHOTREXATE
  7. LEVAQUIN [Concomitant]
     Indication: PROPHYLAXIS
  8. METHOTREXATE [Concomitant]
     Indication: PRODUCT USED FOR UNKNOWN INDICATION
  9. PLAQUENIL [Concomitant]
     Indication: SYSTEMIC LUPUS ERYTHEMATOSUS
  10. MOBIC [Concomitant]
     Indication: ANTIINFLAMMATORY THERAPY
  11. ZYRTEC [Concomitant]
     Indication: HYPERSENSITIVITY
  12. OMEPRAZOLE [Concomitant]
     Indication: ABDOMINAL DISCOMFORT
  13. VALTREX [Concomitant]
     Indication: HERPES VIRUS INFECTION
  14. CALCIUM W/VITAMIN D [Concomitant]
     Indication: BLOOD CALCIUM DECREASED
  15. FIORICET [Concomitant]
     Indication: HEADACHE

REACTIONS (8)
  - BREAST HYPERPLASIA [None]
  - BREAST MASS [None]
  - HEADACHE [None]
  - INJECTION SITE HAEMATOMA [None]
  - INJECTION SITE PAIN [None]
  - UTERINE DISORDER [None]
  - UTERINE HAEMORRHAGE [None]
  - VAGINAL HAEMORRHAGE [None]
